FAERS Safety Report 7185134-3 (Version None)
Quarter: 2010Q4

REPORT INFORMATION
  Report Type: 
  Country: None (occurrence: None)
  Receive Date: 20101123
  Receipt Date: 20090821
  Transmission Date: 20110411
  Serious: No
  Sender: FDA-Public Use
  Company Number: 020098

PATIENT
  Sex: Male

DRUGS (1)
  1. CIMZIA [Suspect]
     Indication: CROHN'S DISEASE
     Dosage: (SUBCUTANEOUS)
     Route: 058

REACTIONS (2)
  - ABDOMINAL PAIN [None]
  - DRUG DOSE OMISSION [None]
